FAERS Safety Report 7753861-2 (Version None)
Quarter: 2011Q3

REPORT INFORMATION
  Report Type: 
  Country: None (occurrence: None)
  Receive Date: 20110915
  Receipt Date: 20110912
  Transmission Date: 20111222
  Serious: Yes (Other)
  Sender: FDA-Public Use
  Company Number: US-PFIZER INC-2011149747

PATIENT
  Sex: Female
  Weight: 52.608 kg

DRUGS (12)
  1. VESICARE [Suspect]
     Indication: HYPERTONIC BLADDER
     Dosage: UNK
  2. OXYBUTYNIN [Suspect]
     Indication: HYPERTONIC BLADDER
     Dosage: UNK
  3. SYNTHROID [Concomitant]
     Indication: THYROID DISORDER
     Dosage: 125 UG, DAILY
  4. SYNTHROID [Concomitant]
     Indication: HORMONE THERAPY
  5. DETROL LA [Suspect]
     Dosage: 4 MG, 2X/DAY
  6. FIORICET [Concomitant]
     Indication: PAIN
     Dosage: UNK
  7. NASAL SALINE [Concomitant]
     Dosage: UNK
  8. FLUOXETINE [Concomitant]
     Dosage: UNK
  9. PROZAC [Concomitant]
     Indication: DEPRESSION
     Dosage: UNK
  10. DETROL LA [Suspect]
     Indication: HYPERTONIC BLADDER
     Dosage: UNK
     Dates: start: 20100701
  11. NEXIUM [Concomitant]
     Indication: GASTROENTERITIS
     Dosage: 40 MG, DAILY
  12. AMBIEN [Concomitant]
     Dosage: 10 MG, UNK

REACTIONS (7)
  - CORNEAL ABRASION [None]
  - CONCUSSION [None]
  - CYSTITIS [None]
  - HEART RATE INCREASED [None]
  - SINUSITIS [None]
  - BLADDER PAIN [None]
  - PAIN [None]
